FAERS Safety Report 8088581-0 (Version None)
Quarter: 2012Q1

REPORT INFORMATION
  Report Type: 
  Country: None (occurrence: None)
  Receive Date: 20120128
  Receipt Date: 20110405
  Transmission Date: 20120608
  Serious: No
  Sender: FDA-Public Use
  Company Number: US-ABBOTT-11P-163-0717636-00

PATIENT
  Sex: Male
  Weight: 65.83 kg

DRUGS (2)
  1. HUMIRA [Suspect]
     Indication: CROHN'S DISEASE
     Dosage: LOT UNAVAILABLE, PT NOT HOME
     Route: 058
     Dates: start: 20100701
  2. MULTI-VITAMIN [Concomitant]
     Indication: PRODUCT USED FOR UNKNOWN INDICATION

REACTIONS (11)
  - CHEST PAIN [None]
  - NASOPHARYNGITIS [None]
  - HYPOAESTHESIA [None]
  - INJECTION SITE OEDEMA [None]
  - PERIPHERAL VASCULAR DISORDER [None]
  - INJECTION SITE NODULE [None]
  - GASTROOESOPHAGEAL REFLUX DISEASE [None]
  - ASTHENIA [None]
  - VITAMIN D DEFICIENCY [None]
  - DYSPEPSIA [None]
  - CROHN'S DISEASE [None]
